FAERS Safety Report 8804455 (Version 1)
Quarter: 2012Q4

REPORT INFORMATION
  Report Type: 
  Country: US (occurrence: US)
  Receive Date: 20120924
  Receipt Date: 20120924
  Transmission Date: 20130627
  Serious: Yes (Hospitalization)
  Sender: FDA-Public Use
  Company Number: US-BAYER-2012-097413

PATIENT
  Age: 38 Year
  Sex: Female
  Weight: 54.42 kg

DRUGS (6)
  1. YAZ [Suspect]
     Indication: PREMENSTRUAL SYNDROME
     Dosage: UNK
     Dates: start: 20060818, end: 20101213
  2. YAZ [Suspect]
     Indication: MENORRHAGIA
  3. YASMIN [Suspect]
     Indication: PREMENSTRUAL SYNDROME
     Dosage: UNK
     Dates: start: 200608, end: 201012
  4. YASMIN [Suspect]
     Indication: MENORRHAGIA
  5. MOTRIN [Concomitant]
     Indication: PAIN IN EXTREMITY
     Dosage: UNK
     Dates: start: 20101213
  6. TYLENOL [Concomitant]
     Dosage: UNK
     Dates: start: 20101213

REACTIONS (9)
  - Deep vein thrombosis [Recovered/Resolved]
  - Pulmonary embolism [Recovered/Resolved]
  - Dyspnoea [Recovered/Resolved]
  - Tachypnoea [Recovered/Resolved]
  - Chest pain [Recovered/Resolved]
  - Pain in extremity [Recovered/Resolved]
  - Anxiety [None]
  - Stress [None]
  - Fear of disease [None]
